FAERS Safety Report 6162573-0 (Version None)
Quarter: 2009Q2

REPORT INFORMATION
  Report Type: 
  Country: None (occurrence: None)
  Receive Date: 20090421
  Receipt Date: 20080428
  Transmission Date: 20091009
  Serious: No
  Sender: FDA-Public Use
  Company Number: US-ASTRAZENECA-2004UW14100

PATIENT
  Age: 73 Year
  Sex: Female
  Weight: 90.9 kg

DRUGS (6)
  1. CRESTOR [Suspect]
     Indication: BLOOD CHOLESTEROL INCREASED
     Route: 048
     Dates: start: 20040401
  2. WATER PILL [Concomitant]
  3. VITAMIN E [Concomitant]
  4. ASPIRIN [Concomitant]
  5. MOBIC [Concomitant]
  6. TRIAMTERENE [Concomitant]

REACTIONS (6)
  - BLOOD CALCIUM INCREASED [None]
  - BLOOD GLUCOSE DECREASED [None]
  - DYSPEPSIA [None]
  - MUSCULOSKELETAL PAIN [None]
  - OROPHARYNGEAL PAIN [None]
  - VOMITING [None]
